FAERS Safety Report 13801631 (Version 1)
Quarter: 2017Q3

REPORT INFORMATION
  Report Type: Spontaneous
  Country: PT (occurrence: PT)
  Receive Date: 20170727
  Receipt Date: 20170727
  Transmission Date: 20171127
  Serious: Yes (Other)
  Sender: FDA-Public Use
  Company Number: PT-009507513-1707PRT007629

PATIENT
  Age: 39 Year
  Sex: Female

DRUGS (1)
  1. CIRCLET [Suspect]
     Active Substance: ETHINYL ESTRADIOL\ETONOGESTREL
     Indication: CONTRACEPTION
     Dosage: UNK
     Route: 067
     Dates: start: 201601

REACTIONS (5)
  - Metrorrhagia [Unknown]
  - Amenorrhoea [Unknown]
  - Abnormal withdrawal bleeding [Recovered/Resolved]
  - Inappropriate schedule of drug administration [Unknown]
  - Thyroid cancer [Unknown]
